FAERS Safety Report 19775511 (Version 1)
Quarter: 2021Q3

REPORT INFORMATION
  Report Type: Spontaneous
  Country: CA (occurrence: CA)
  Receive Date: 20210901
  Receipt Date: 20210901
  Transmission Date: 20211014
  Serious: Yes (Other)
  Sender: FDA-Public Use
  Company Number: CA-TEVA-2021-CA-1946772

PATIENT
  Age: 45 Year
  Sex: Female

DRUGS (3)
  1. PERPHENAZINE. [Suspect]
     Active Substance: PERPHENAZINE
     Indication: MAJOR DEPRESSION
     Dosage: 8 MILLIGRAM DAILY;
     Route: 065
  2. LORAZEPAM. [Suspect]
     Active Substance: LORAZEPAM
     Indication: MAJOR DEPRESSION
     Dosage: 4 MILLIGRAM DAILY;
     Route: 065
  3. SERTRALINE [Suspect]
     Active Substance: SERTRALINE HYDROCHLORIDE
     Indication: MAJOR DEPRESSION
     Dosage: 300 MILLIGRAM DAILY;
     Route: 065

REACTIONS (14)
  - Dysphagia [Unknown]
  - Dystonia [Unknown]
  - Mitochondrial encephalomyopathy [Unknown]
  - Urinary incontinence [Unknown]
  - Dysarthria [Unknown]
  - Dyskinesia [Unknown]
  - Fatigue [Unknown]
  - Clumsiness [Unknown]
  - Dysmetria [Unknown]
  - Memory impairment [Unknown]
  - Anal incontinence [Unknown]
  - Paraesthesia [Unknown]
  - Eyelid ptosis [Unknown]
  - Gait disturbance [Unknown]
